FAERS Safety Report 17797128 (Version 1)
Quarter: 2020Q2

REPORT INFORMATION
  Report Type: Report from Study
  Country: None (occurrence: US)
  Receive Date: 20200518
  Receipt Date: 20200518
  Transmission Date: 20200714
  Serious: Yes (Hospitalization, Other)
  Sender: FDA-Public Use
  Company Number: US-BIOVITRUM-2020US0452

PATIENT
  Age: 42 Year
  Sex: Female

DRUGS (1)
  1. KINERET [Suspect]
     Active Substance: ANAKINRA
     Indication: STILL^S DISEASE
     Route: 058

REACTIONS (15)
  - Musculoskeletal pain [Unknown]
  - Pain [Unknown]
  - Pyrexia [Unknown]
  - Back pain [Unknown]
  - Myalgia [Unknown]
  - Product dose omission [Unknown]
  - Internal hernia [Unknown]
  - Fatigue [Unknown]
  - Rash [Unknown]
  - Migraine [Unknown]
  - Off label use [Unknown]
  - Musculoskeletal stiffness [Unknown]
  - Headache [Unknown]
  - Volvulus [Unknown]
  - Raynaud^s phenomenon [Unknown]

NARRATIVE: CASE EVENT DATE: 201912
